FAERS Safety Report 9397937 (Version 4)
Quarter: 2013Q3

REPORT INFORMATION
  Report Type: Spontaneous
  Country: TW (occurrence: TW)
  Receive Date: 20130712
  Receipt Date: 20130801
  Transmission Date: 20140515
  Serious: Yes (Hospitalization)
  Sender: FDA-Public Use
  Company Number: TW-JNJFOC-20130701989

PATIENT
  Age: 71 Year
  Sex: Female
  Weight: 46.8 kg

DRUGS (14)
  1. SIMPONI [Suspect]
     Indication: RHEUMATOID ARTHRITIS
     Route: 058
     Dates: start: 20130621
  2. SIMPONI [Suspect]
     Indication: RHEUMATOID ARTHRITIS
     Route: 058
     Dates: start: 20120518
  3. VALSARTAN [Concomitant]
     Route: 048
  4. ETORICOXIB [Concomitant]
     Route: 048
  5. CODEINE [Concomitant]
     Dosage: AS NEEDED
     Route: 048
  6. ARTELAC [Concomitant]
     Route: 065
  7. MELOXICAM [Concomitant]
     Route: 048
  8. PREDNISOLONE [Concomitant]
     Route: 048
  9. SALAZOPYRIN [Concomitant]
     Route: 048
  10. PLAQUENIL [Concomitant]
     Route: 048
  11. MECLIZINE [Concomitant]
     Route: 048
  12. ULTRACET [Concomitant]
     Route: 048
  13. STILNOX [Concomitant]
     Dosage: QN
     Route: 048
  14. ACLASTA [Concomitant]
     Indication: OSTEOPOROSIS
     Route: 065

REACTIONS (4)
  - Cellulitis [Recovered/Resolved]
  - Leukopenia [Unknown]
  - Cough [Unknown]
  - Dry eye [Unknown]
